FAERS Safety Report 19556056 (Version 1)
Quarter: 2021Q3

REPORT INFORMATION
  Report Type: Report from Study
  Country: US (occurrence: US)
  Receive Date: 20210716
  Receipt Date: 20210716
  Transmission Date: 20211014
  Serious: Yes (Death, Other)
  Sender: FDA-Public Use
  Company Number: US-ACADIA PHARMACEUTICALS INC.-ACA-2021-PIM-002331

PATIENT
  Age: 85 Year
  Sex: Male

DRUGS (14)
  1. NUPLAZID [Suspect]
     Active Substance: PIMAVANSERIN TARTRATE
     Indication: DELUSION
  2. DONEPEZIL. [Concomitant]
     Active Substance: DONEPEZIL
  3. LEVOTHYROXIN [Concomitant]
     Active Substance: LEVOTHYROXINE
  4. VITAMIN B12 [Concomitant]
     Active Substance: CYANOCOBALAMIN
  5. NUPLAZID [Suspect]
     Active Substance: PIMAVANSERIN TARTRATE
     Indication: PARKINSON^S DISEASE PSYCHOSIS
     Dosage: 34 MILLIGRAM, QD
     Route: 048
     Dates: start: 20210304, end: 202106
  6. ELIQUIS [Concomitant]
     Active Substance: APIXABAN
  7. MIRTAZAPINE. [Concomitant]
     Active Substance: MIRTAZAPINE
  8. CELECOXIB. [Concomitant]
     Active Substance: CELECOXIB
  9. ISOSORBIDE DINITRATE. [Concomitant]
     Active Substance: ISOSORBIDE DINITRATE
  10. OMEPRAZOLE. [Concomitant]
     Active Substance: OMEPRAZOLE
  11. MEMANTINE HCL [Concomitant]
     Active Substance: MEMANTINE
  12. MYRBETRIQ [Concomitant]
     Active Substance: MIRABEGRON
  13. RYTARY [Concomitant]
     Active Substance: CARBIDOPA\LEVODOPA
  14. NUPLAZID [Suspect]
     Active Substance: PIMAVANSERIN TARTRATE
     Indication: HALLUCINATION

REACTIONS (1)
  - Death [Recovered/Resolved]

NARRATIVE: CASE EVENT DATE: 20210614
